FAERS Safety Report 7231007-7 (Version None)
Quarter: 2011Q1

REPORT INFORMATION
  Report Type: 
  Country: None (occurrence: None)
  Receive Date: 20110107
  Receipt Date: 20101227
  Transmission Date: 20110831
  Serious: Yes (Other)
  Sender: FDA-Public Use
  Company Number: 2010MA005564

PATIENT
  Sex: Female

DRUGS (2)
  1. DEPOT INJECTION ANTIPSYCHOTIC MEDICATION (NO PREF. NAME) [Suspect]
  2. CITALOPRAM HYDROBROMIDE [Suspect]
     Dosage: 40 MG;

REACTIONS (2)
  - MUSCLE RIGIDITY [None]
  - DYSTONIA [None]
